FAERS Safety Report 25090091 (Version 1)
Quarter: 2025Q1

REPORT INFORMATION
  Report Type: Spontaneous
  Country: US (occurrence: US)
  Receive Date: 20250318
  Receipt Date: 20250318
  Transmission Date: 20250409
  Serious: No
  Sender: ASTELLAS
  Company Number: US-ASTELLAS-2025-AER-014031

PATIENT
  Sex: Female

DRUGS (1)
  1. VEOZAH [Suspect]
     Active Substance: FEZOLINETANT
     Indication: Product used for unknown indication
     Dosage: 45 MG DAILY APPROXIMATELY TWO MONTHS
     Route: 065

REACTIONS (1)
  - Hepatic enzyme increased [Unknown]
